FAERS Safety Report 12637363 (Version 1)
Quarter: 2016Q3

REPORT INFORMATION
  Report Type: Spontaneous
  Country: US (occurrence: US)
  Receive Date: 20160809
  Receipt Date: 20160809
  Transmission Date: 20161109
  Serious: No
  Sender: FDA-Public Use
  Company Number: US-BEH-2016058024

PATIENT
  Sex: Female
  Weight: 62 kg

DRUGS (5)
  1. PRIVIGEN [Suspect]
     Active Substance: HUMAN IMMUNOGLOBULIN G
     Indication: HYPOGLOBULINAEMIA
     Route: 042
     Dates: start: 20141017
  2. ATIVAN [Concomitant]
     Active Substance: LORAZEPAM
  3. CVS VITAMIN D [Concomitant]
     Dosage: SOFTGEL
  4. VIVELLE-DOT [Concomitant]
     Active Substance: ESTRADIOL
     Dosage: PATCH
  5. NORCO [Concomitant]
     Active Substance: ACETAMINOPHEN\HYDROCODONE BITARTRATE
     Dosage: 10-325

REACTIONS (3)
  - Blood pressure increased [Unknown]
  - Oral mucosal blistering [Unknown]
  - Nasopharyngitis [Unknown]
